FAERS Safety Report 6869751-3 (Version None)
Quarter: 2010Q3

REPORT INFORMATION
  Report Type: 
  Country: None (occurrence: None)
  Receive Date: 20100722
  Receipt Date: 20081008
  Transmission Date: 20110219
  Serious: Yes (Other)
  Sender: FDA-Public Use
  Company Number: US-PFIZER INC-2008070643

PATIENT
  Sex: Male
  Weight: 150.6 kg

DRUGS (9)
  1. CHANTIX [Suspect]
     Indication: SMOKING CESSATION THERAPY
     Dates: start: 20080401, end: 20080422
  2. FLEXERIL [Concomitant]
  3. TRAZODONE [Concomitant]
  4. LASIX [Concomitant]
  5. LISINOPRIL [Concomitant]
  6. PERCOCET [Concomitant]
  7. NITROGLYCERIN [Concomitant]
     Dosage: AS NEEDED
  8. SIMVASTATIN [Concomitant]
  9. PRILOSEC [Concomitant]

REACTIONS (1)
  - CONVULSION [None]
